FAERS Safety Report 7591173-0 (Version None)
Quarter: 2011Q3

REPORT INFORMATION
  Report Type: 
  Country: None (occurrence: None)
  Receive Date: 20110705
  Receipt Date: 20110627
  Transmission Date: 20111222
  Serious: Yes (Hospitalization)
  Sender: FDA-Public Use
  Company Number: US-ASTRAZENECA-2011SE38718

PATIENT
  Age: 59 Year
  Sex: Male

DRUGS (2)
  1. ANTIDEPRESSANTS [Concomitant]
  2. NEXIUM [Suspect]
     Route: 048

REACTIONS (6)
  - STRESS [None]
  - HIATUS HERNIA [None]
  - GASTROOESOPHAGEAL REFLUX DISEASE [None]
  - DRUG DOSE OMISSION [None]
  - ANXIETY [None]
  - CHEST PAIN [None]
